FAERS Safety Report 13658768 (Version 2)
Quarter: 2017Q3

REPORT INFORMATION
  Report Type: Report from Study
  Country: US (occurrence: US)
  Receive Date: 20170616
  Receipt Date: 20170719
  Transmission Date: 20171127
  Serious: No
  Sender: FDA-Public Use
  Company Number: US-AMGEN-USASL2017088426

PATIENT
  Age: 48 Year
  Sex: Female

DRUGS (17)
  1. PROAIR HFA [Concomitant]
     Active Substance: ALBUTEROL SULFATE
     Dosage: 90 MUG, AS NEEDED
  2. NABUMETONE. [Concomitant]
     Active Substance: NABUMETONE
     Dosage: 500 MG, TWICE A DAY
  3. LISINOPRIL. [Concomitant]
     Active Substance: LISINOPRIL
     Dosage: 5/325 AS NEEDED
  4. ENBREL [Suspect]
     Active Substance: ETANERCEPT
     Indication: RHEUMATOID ARTHRITIS
     Dosage: 50 MG, QWK
     Route: 065
     Dates: start: 20170528, end: 201706
  5. PRAVASTATIN. [Concomitant]
     Active Substance: PRAVASTATIN
     Dosage: 20 MG, AT NIGHT
  6. FLUOXETINE [Concomitant]
     Active Substance: FLUOXETINE HYDROCHLORIDE
     Dosage: UNK, AM
  7. SUMATRIPTAN. [Concomitant]
     Active Substance: SUMATRIPTAN
     Dosage: 100 MG, AS NEEDED
  8. PROGESTERONE. [Concomitant]
     Active Substance: PROGESTERONE
     Dosage: 100 MG, ON 14 OFF 12 DAYS
  9. VIIBRYD [Concomitant]
     Active Substance: VILAZODONE HYDROCHLORIDE
     Dosage: 20 MG, AM
  10. LORAZEPAM. [Concomitant]
     Active Substance: LORAZEPAM
     Dosage: 0.5 MG,NEEDED X 2
  11. PREVACID [Concomitant]
     Active Substance: LANSOPRAZOLE
     Dosage: UNK
  12. LORAZEPAM. [Concomitant]
     Active Substance: LORAZEPAM
     Dosage: 1 MG, AT NIGHT
  13. ASA [Concomitant]
     Active Substance: ASPIRIN
     Dosage: 81 MG, AT NIGHT
  14. PREDNISONE. [Concomitant]
     Active Substance: PREDNISONE
     Dosage: UNK
  15. LEVOTHYROXIN [Concomitant]
     Active Substance: LEVOTHYROXINE
     Dosage: 0.75 UNK, UNK
  16. LISINOPRIL. [Concomitant]
     Active Substance: LISINOPRIL
     Dosage: 5 MG, AM
  17. BREO ELLIPTA [Concomitant]
     Active Substance: FLUTICASONE FUROATE\VILANTEROL TRIFENATATE
     Dosage: 200NCG 2 PUFFS AS NEEDED

REACTIONS (21)
  - Blood pressure decreased [Recovered/Resolved]
  - Chills [Unknown]
  - Hypoaesthesia [Unknown]
  - Peripheral swelling [Recovered/Resolved]
  - Injection site swelling [Unknown]
  - Visual impairment [Unknown]
  - Joint swelling [Recovered/Resolved]
  - Fatigue [Unknown]
  - Pain in extremity [Unknown]
  - Productive cough [Unknown]
  - Rash erythematous [Unknown]
  - Pyrexia [Unknown]
  - Abdominal pain [Unknown]
  - Hypersensitivity [Unknown]
  - Insomnia [Unknown]
  - Injection site erythema [Unknown]
  - Tinnitus [Unknown]
  - Arthralgia [Unknown]
  - Paraesthesia [Unknown]
  - Injection site rash [Unknown]
  - Back pain [Unknown]

NARRATIVE: CASE EVENT DATE: 2017
